FAERS Safety Report 9342687 (Version 3)
Quarter: 2013Q3

REPORT INFORMATION
  Report Type: Spontaneous
  Country: DE (occurrence: DE)
  Receive Date: 20130611
  Receipt Date: 20130701
  Transmission Date: 20140515
  Serious: Yes (Death)
  Sender: FDA-Public Use
  Company Number: DE-JNJFOC-20130606615

PATIENT
  Age: 83 Year
  Sex: Male

DRUGS (2)
  1. XARELTO [Suspect]
     Indication: CEREBROVASCULAR ACCIDENT PROPHYLAXIS
     Route: 048
     Dates: start: 201211, end: 201303
  2. XARELTO [Suspect]
     Indication: ATRIAL FIBRILLATION
     Route: 048
     Dates: start: 201211, end: 201303

REACTIONS (6)
  - Pulmonary embolism [Fatal]
  - Sepsis [Fatal]
  - Multi-organ failure [Fatal]
  - Pneumonia staphylococcal [Fatal]
  - Respiratory failure [Fatal]
  - Renal failure acute [Fatal]
